FAERS Safety Report 18550403 (Version 1)
Quarter: 2020Q4

REPORT INFORMATION
  Report Type: Report from Study
  Country: JP (occurrence: JP)
  Receive Date: 20201126
  Receipt Date: 20201126
  Transmission Date: 20210114
  Serious: Yes (Hospitalization)
  Sender: FDA-Public Use
  Company Number: JP-DSJP-DSJ-2019-109371AA

PATIENT
  Age: 88 Year
  Sex: Female
  Weight: 51 kg

DRUGS (20)
  1. BONALON [Concomitant]
     Active Substance: ALENDRONATE SODIUM
     Indication: OSTEOPOROSIS
     Dosage: 35 MG, QD
     Route: 048
     Dates: start: 20080327
  2. CIBENOL [Concomitant]
     Active Substance: CIFENLINE
     Indication: ARTERIOSCLEROSIS CORONARY ARTERY
     Dosage: 100 MG, QD
     Route: 048
     Dates: start: 20180507
  3. EDIROL [Concomitant]
     Active Substance: ELDECALCITOL
     Indication: OSTEOPOROSIS
     Dosage: 0.75 UG, QD
     Route: 048
     Dates: start: 20160926
  4. HIRUDOID [Concomitant]
     Active Substance: GLYCOSAMINOGLYCANS
     Indication: ECZEMA
     Dosage: 1 DF, AS NEEDED
     Route: 062
     Dates: start: 20180817
  5. LENDORMIN D [Concomitant]
     Active Substance: BROTIZOLAM
     Indication: INSOMNIA
     Dosage: 0.25 MG, QD
     Route: 048
     Dates: start: 20070817
  6. GOOFICE [Concomitant]
     Active Substance: ELOBIXIBAT
     Indication: HEPATIC STEATOSIS
     Dosage: 10 MG, QD
     Route: 048
     Dates: start: 20180915
  7. PREMINENT [Concomitant]
     Active Substance: HYDROCHLOROTHIAZIDE\LOSARTAN POTASSIUM
     Indication: HYPERTENSION
     Dosage: 1 DF, QD
     Route: 048
     Dates: start: 20161104
  8. RANMARK [Concomitant]
     Active Substance: DENOSUMAB
     Indication: METASTASES TO BONE
     Dosage: 120 MG, AS NEEDED
     Route: 058
     Dates: start: 20190214
  9. REBAMIPIDE [Concomitant]
     Active Substance: REBAMIPIDE
     Indication: CHRONIC GASTRITIS
     Dosage: 100 MG, BID
     Route: 048
     Dates: start: 20160212
  10. VOLTAREN [Concomitant]
     Active Substance: DICLOFENAC SODIUM
     Indication: SPONDYLOLISTHESIS
     Dosage: 1 DF, AS NEEDED
     Route: 062
     Dates: start: 20180518
  11. TRASTUZUMAB DERUXTECAN. [Suspect]
     Active Substance: TRASTUZUMAB DERUXTECAN
     Dosage: 4.4 MG/KG, ONCE EVERY 3 WK
     Route: 041
     Dates: start: 20190228, end: 20190228
  12. DOMPERIDONE [Concomitant]
     Active Substance: DOMPERIDONE
     Indication: NAUSEA
     Dosage: 10 MG, AS NEEDED
     Route: 048
     Dates: start: 20190208
  13. TOUGHMAC E [Concomitant]
     Active Substance: AMYLASE\LIPASE\PROTEASE
     Indication: GASTROOESOPHAGEAL REFLUX DISEASE
     Dosage: 2 DF, BID
     Route: 048
     Dates: start: 20160212
  14. GASMOTIN [Concomitant]
     Active Substance: MOSAPRIDE CITRATE
     Indication: CHRONIC GASTRITIS
     Dosage: 5 MG, BID
     Route: 048
     Dates: start: 20160212
  15. LOXONIN [Concomitant]
     Active Substance: LOXOPROFEN SODIUM
     Indication: SPONDYLOLISTHESIS
     Dosage: 1 DF, AS NEEDED
     Route: 062
     Dates: start: 20111104
  16. TRAMCET [Concomitant]
     Active Substance: ACETAMINOPHEN\TRAMADOL
     Indication: CANCER PAIN
     Dosage: 1 DF, QD
     Route: 048
     Dates: start: 20160212
  17. TRASTUZUMAB DERUXTECAN. [Suspect]
     Active Substance: TRASTUZUMAB DERUXTECAN
     Indication: HER2 POSITIVE BREAST CANCER
     Dosage: 5.4 MG/KG, ONCE EVERY 3 WK
     Route: 041
     Dates: start: 20190207, end: 20190207
  18. MAINTATE [Concomitant]
     Active Substance: BISOPROLOL FUMARATE
     Indication: ARTERIOSCLEROSIS CORONARY ARTERY
     Dosage: 2.5 MG, QD
     Route: 048
     Dates: start: 20130811
  19. PARIET [Concomitant]
     Active Substance: RABEPRAZOLE SODIUM
     Indication: CHRONIC GASTRITIS
     Dosage: 10 MG, QD
     Route: 048
     Dates: start: 20130111
  20. RINDERON V [Concomitant]
     Active Substance: BETAMETHASONE VALERATE
     Indication: ECZEMA
     Dosage: 1 DF, AS NEEDED
     Route: 062
     Dates: start: 20180817

REACTIONS (1)
  - Dehydration [Recovered/Resolved]

NARRATIVE: CASE EVENT DATE: 20190312
